FAERS Safety Report 9744829 (Version 2)
Quarter: 2013Q4

REPORT INFORMATION
  Report Type: Report from Study
  Country: US (occurrence: US)
  Receive Date: 20131211
  Receipt Date: 20131211
  Transmission Date: 20140711
  Serious: Yes (Other)
  Sender: FDA-Public Use
  Company Number: US-ROCHE-1283878

PATIENT
  Age: 76 Year
  Sex: Female

DRUGS (8)
  1. AVASTIN [Suspect]
     Indication: IMPAIRED HEALING
     Dosage: OU
     Route: 050
  2. LUCENTIS [Suspect]
     Indication: IMPAIRED HEALING
     Dosage: BOTH THE EYES
     Route: 065
     Dates: start: 2013, end: 201311
  3. DIOVAN [Concomitant]
     Indication: HYPERTENSION
  4. GABAPENTIN [Concomitant]
     Indication: ARTHRITIS
  5. GABAPENTIN [Concomitant]
     Indication: ARTHRITIS
  6. DILTIAZEM [Concomitant]
     Indication: HYPERTENSION
  7. COLCRYS [Concomitant]
     Indication: GOUT
     Route: 065
  8. QUINAPRIL [Concomitant]
     Indication: HYPERTENSION

REACTIONS (6)
  - Transient ischaemic attack [Unknown]
  - Amnesia [Unknown]
  - Off label use [Unknown]
  - Injection site pain [Recovered/Resolved]
  - Lacrimation increased [Recovered/Resolved]
  - Memory impairment [Not Recovered/Not Resolved]
